FAERS Safety Report 8191414 (Version 11)
Quarter: 2013Q1

REPORT INFORMATION
  Report Type: Report from Study
  Country: TW (occurrence: TW)
  Receive Date: 20111020
  Receipt Date: 20130313
  Transmission Date: 20140127
  Serious: Yes (Death, Hospitalization, Other)
  Sender: FDA-Public Use
  Company Number: TW-CELGENEUS-153-CCAZA-11100654

PATIENT
  Sex: Male
  Weight: 75.9 kg

DRUGS (7)
  1. AZACITIDINE INJECTABLE [Suspect]
     Indication: MYELODYSPLASTIC SYNDROME
     Dosage: 75 MILLIGRAM/SQ. METER
     Route: 058
     Dates: start: 20110725, end: 20110731
  2. AZACITIDINE INJECTABLE [Suspect]
     Dosage: 75 MILLIGRAM/SQ. METER
     Route: 058
     Dates: start: 20110920, end: 20110926
  3. DOXABEN [Concomitant]
     Indication: BENIGN PROSTATIC HYPERPLASIA
     Dosage: 4 MICROGRAM
     Route: 048
     Dates: start: 20111005, end: 20111006
  4. AVODART [Concomitant]
     Indication: BENIGN PROSTATIC HYPERPLASIA
     Dosage: .5 MILLIGRAM
     Route: 048
     Dates: start: 20111005, end: 20111015
  5. ALLOPURINOL [Concomitant]
     Indication: GOUT
     Dosage: 100 MILLIGRAM
     Route: 048
     Dates: start: 20111005, end: 20111009
  6. UROTROL [Concomitant]
     Indication: BENIGN PROSTATIC HYPERPLASIA
     Dosage: 15 MILLIGRAM
     Route: 048
     Dates: start: 2010, end: 20111012
  7. UROTROL [Concomitant]
     Indication: URINARY INCONTINENCE
     Route: 048

REACTIONS (9)
  - Hepatic failure [Fatal]
  - Aspartate aminotransferase increased [Recovered/Resolved with Sequelae]
  - Alanine aminotransferase increased [Recovered/Resolved with Sequelae]
  - Febrile neutropenia [Recovered/Resolved]
  - Pyrexia [Recovered/Resolved]
  - Pancreatitis acute [Not Recovered/Not Resolved]
  - Respiratory failure [Fatal]
  - Renal failure acute [Not Recovered/Not Resolved]
  - Pneumonia [Not Recovered/Not Resolved]
